FAERS Safety Report 9108519 (Version 1)
Quarter: 2013Q1

REPORT INFORMATION
  Report Type: Spontaneous
  Country: LB (occurrence: LB)
  Receive Date: 20130222
  Receipt Date: 20130222
  Transmission Date: 20140127
  Serious: Yes (Death)
  Sender: FDA-Public Use
  Company Number: LB-ABBOTT-13P-093-1052590-00

PATIENT
  Age: 20 Year
  Sex: Male
  Weight: 50 kg

DRUGS (2)
  1. HUMIRA [Suspect]
     Indication: RHEUMATOID ARTHRITIS
     Route: 058
     Dates: start: 200905, end: 201202
  2. HUMIRA [Suspect]
     Route: 058
     Dates: start: 20120516

REACTIONS (1)
  - Death [Fatal]
